FAERS Safety Report 14614841 (Version 1)
Quarter: 2018Q1

REPORT INFORMATION
  Report Type: Spontaneous
  Country: US (occurrence: US)
  Receive Date: 20180308
  Receipt Date: 20180308
  Transmission Date: 20180509
  Serious: No
  Sender: FDA-Public Use
  Company Number: US-TEVA-2018-US-859811

PATIENT
  Sex: Male

DRUGS (1)
  1. COPAXONE [Suspect]
     Active Substance: GLATIRAMER ACETATE
     Route: 058

REACTIONS (5)
  - Blister [Unknown]
  - Injection site haemorrhage [Unknown]
  - Pruritus [Unknown]
  - Injection site pain [Unknown]
  - Injection site mass [Unknown]
